FAERS Safety Report 4879010-6 (Version None)
Quarter: 2005Q4

REPORT INFORMATION
  Report Type: 
  Country: None (occurrence: None)
  Receive Date: 20051209
  Receipt Date: 20050512
  Transmission Date: 20060501
  Serious: Yes (Other)
  Sender: FDA-Public Use
  Company Number: USA-2003-0006764

PATIENT
  Age: 47 Year
  Sex: Female
  Weight: 47.6 kg

DRUGS (24)
  1. OXYCONTIN [Suspect]
     Indication: PAIN
     Dosage: SEE TEXT, ORAL
     Route: 048
     Dates: start: 19980501, end: 20000616
  2. ZOLOFT [Concomitant]
  3. ZYRTEC [Concomitant]
  4. VALIUM [Concomitant]
  5. CALCIUM GLUCONATE [Concomitant]
  6. SOMA [Concomitant]
  7. MULTIVITAMIN [Concomitant]
  8. E.E.S. [Concomitant]
  9. TEGRETOL [Concomitant]
  10. PRILOSEC [Concomitant]
  11. CELEXA [Concomitant]
  12. DIFLUCAN [Concomitant]
  13. CIMETIDINE [Concomitant]
  14. CEFTIN [Concomitant]
  15. CELEBREX [Concomitant]
  16. ROXICODONE [Concomitant]
  17. MALIC ACID [Concomitant]
  18. MAGNESIUM [Concomitant]
  19. FIORICET [Concomitant]
  20. ARTHROTEC [Concomitant]
  21. PROVERA [Concomitant]
  22. ESTRATAB [Concomitant]
  23. NEURONTIN [Concomitant]
  24. DAYPRO [Concomitant]

REACTIONS (27)
  - ABDOMINAL DISCOMFORT [None]
  - ABDOMINAL PAIN [None]
  - ARTHRALGIA [None]
  - BACK PAIN [None]
  - CONDITION AGGRAVATED [None]
  - CONFUSIONAL STATE [None]
  - DEHYDRATION [None]
  - DEPRESSION [None]
  - DIARRHOEA [None]
  - DRUG DEPENDENCE [None]
  - DRUG INEFFECTIVE [None]
  - DRUG WITHDRAWAL SYNDROME [None]
  - HEADACHE [None]
  - HOT FLUSH [None]
  - INSOMNIA [None]
  - IRRITABILITY [None]
  - LIBIDO DECREASED [None]
  - LOSS OF CONSCIOUSNESS [None]
  - MENSTRUATION IRREGULAR [None]
  - MOOD SWINGS [None]
  - MUSCULOSKELETAL STIFFNESS [None]
  - NAUSEA [None]
  - NERVOUSNESS [None]
  - NIGHT SWEATS [None]
  - TREMOR [None]
  - VOMITING [None]
  - WEIGHT DECREASED [None]
